FAERS Safety Report 6203051-X (Version None)
Quarter: 2009Q2

REPORT INFORMATION
  Report Type: 
  Country: None (occurrence: None)
  Receive Date: 20090521
  Receipt Date: 20090521
  Transmission Date: 20091009
  Serious: No
  Sender: FDA-Public Use
  Company Number: None

PATIENT
  Age: 44 Year
  Sex: Female
  Weight: 80.2867 kg

DRUGS (1)
  1. AZITHROMYCIN [Suspect]
     Indication: SINUSITIS
     Dosage: 250 MG 1 DAILY PO
     Route: 048
     Dates: start: 20090517, end: 20090518

REACTIONS (5)
  - ABDOMINAL PAIN UPPER [None]
  - AGEUSIA [None]
  - CHILLS [None]
  - NAUSEA [None]
  - VOMITING [None]
